FAERS Safety Report 9785857 (Version 1)
Quarter: 2013Q4

REPORT INFORMATION
  Report Type: Spontaneous
  Country: GB (occurrence: None)
  Receive Date: 20131223
  Receipt Date: 20131223
  Transmission Date: 20140711
  Serious: Yes (Death)
  Sender: FDA-Public Use
  Company Number: 2013P1021951

PATIENT
  Age: 59 Year
  Sex: Female

DRUGS (3)
  1. DIAZEPAM [Suspect]
     Route: 048
  2. DOXYLAMINE [Suspect]
     Route: 048
  3. VERAPAMIL [Suspect]

REACTIONS (2)
  - Completed suicide [None]
  - Brain oedema [None]
